FAERS Safety Report 20621535 (Version 1)
Quarter: 2022Q1

REPORT INFORMATION
  Report Type: Spontaneous
  Country: US (occurrence: US)
  Receive Date: 20220322
  Receipt Date: 20220322
  Transmission Date: 20220424
  Serious: No
  Sender: FDA-Public Use
  Company Number: US-ALLERGAN-2115793US

PATIENT
  Sex: Female

DRUGS (4)
  1. LATISSE [Suspect]
     Active Substance: BIMATOPROST
     Indication: Growth of eyelashes
     Dosage: 2 GTT, QPM
     Route: 061
  2. LATISSE [Suspect]
     Active Substance: BIMATOPROST
     Dosage: UNK UNK, QOD
     Route: 061
  3. LATISSE [Suspect]
     Active Substance: BIMATOPROST
     Dosage: UNK UNK, QPM
     Route: 061
  4. Unknown bioidentical hormone [Concomitant]
     Route: 061

REACTIONS (2)
  - Inappropriate schedule of product administration [Unknown]
  - Drug ineffective [Unknown]
